FAERS Safety Report 16071712 (Version 1)
Quarter: 2019Q1

REPORT INFORMATION
  Report Type: Spontaneous
  Country: US (occurrence: US)
  Receive Date: 20190314
  Receipt Date: 20190314
  Transmission Date: 20190418
  Serious: No
  Sender: FDA-Public Use
  Company Number: US-MTPC-MTDA2019-0038801

PATIENT

DRUGS (2)
  1. RADICAVA [Suspect]
     Active Substance: EDARAVONE
     Indication: AMYOTROPHIC LATERAL SCLEROSIS
     Dosage: 60 MILLIGRAM, DAILY DOSING OVER A 60 MINUTE PERIOD FOR 14 DAYS FOLLOWED BY A 14 DAY DRUG FREE PERIOD
     Route: 042
     Dates: start: 201902
  2. RADICAVA [Suspect]
     Active Substance: EDARAVONE
     Dosage: 60 MILLIGRAM, DAILY DOSING OVER A 60 MINUTE PERIOD FOR 10 DAYS OUT OF 14 DAY PERIODS, FOLLOWED BY A
     Route: 042

REACTIONS (1)
  - Aphonia [Unknown]
